FAERS Safety Report 7087208-4 (Version None)
Quarter: 2010Q4

REPORT INFORMATION
  Report Type: 
  Country: None (occurrence: None)
  Receive Date: 20101106
  Receipt Date: 20101029
  Transmission Date: 20110411
  Serious: No
  Sender: FDA-Public Use
  Company Number: US-WYE-H18439910

PATIENT
  Sex: Female

DRUGS (2)
  1. PROTONIX [Suspect]
     Indication: IMPAIRED GASTRIC EMPTYING
     Dosage: UNKNOWN
  2. ZOFRAN [Concomitant]

REACTIONS (3)
  - MALAISE [None]
  - NAUSEA [None]
  - THROAT IRRITATION [None]
